FAERS Safety Report 5538544-1 (Version None)
Quarter: 2007Q4

REPORT INFORMATION
  Report Type: 
  Country: None (occurrence: None)
  Receive Date: 20071208
  Receipt Date: 20061207
  Transmission Date: 20080405
  Serious: No
  Sender: FDA-Public Use
  Company Number: US-AMGEN-KDL202800

PATIENT
  Sex: Male

DRUGS (4)
  1. ENBREL [Suspect]
     Indication: RHEUMATOID ARTHRITIS
     Route: 058
     Dates: start: 20051129
  2. PLAQUENIL [Concomitant]
     Dates: start: 20040101
  3. DOXYCYCLINE [Concomitant]
     Indication: RHEUMATOID ARTHRITIS
  4. DOXYCYCLINE [Concomitant]
     Indication: PSORIASIS

REACTIONS (1)
  - DYSGEUSIA [None]
